FAERS Safety Report 12422418 (Version 6)
Quarter: 2016Q3

REPORT INFORMATION
  Report Type: Report from Study
  Country: KR (occurrence: KR)
  Receive Date: 20160601
  Receipt Date: 20160926
  Transmission Date: 20161109
  Serious: Yes (Hospitalization)
  Sender: FDA-Public Use
  Company Number: KR-ROCHE-1751934

PATIENT
  Age: 57 Year
  Sex: Female
  Weight: 45 kg

DRUGS (47)
  1. DULCOLAX (BISACODYL) [Concomitant]
     Active Substance: BISACODYL
     Indication: CONSTIPATION
     Dosage: SUPPOSITORY
     Route: 054
     Dates: start: 20160427, end: 20160501
  2. TARGIN RETARD [Concomitant]
     Route: 048
     Dates: start: 20160508, end: 20160508
  3. CURAN [Concomitant]
     Active Substance: RANITIDINE HYDROCHLORIDE
     Route: 048
     Dates: start: 20160508, end: 20160520
  4. NEURONTIN (SOUTH KOREA) [Concomitant]
     Route: 048
     Dates: start: 20160414, end: 20160501
  5. NEXIUM [Concomitant]
     Active Substance: ESOMEPRAZOLE MAGNESIUM
     Indication: PREMEDICATION
     Route: 042
     Dates: start: 20160502, end: 20160502
  6. GASOCOL [Concomitant]
     Route: 048
     Dates: start: 20160513, end: 20160513
  7. CAROL-F [Concomitant]
     Indication: MUSCULOSKELETAL CHEST PAIN
     Route: 048
     Dates: start: 20160314, end: 20160501
  8. TARGIN RETARD [Concomitant]
     Indication: MUSCULOSKELETAL CHEST PAIN
     Dosage: 10/5
     Route: 048
     Dates: start: 20160314, end: 20160407
  9. TARGIN RETARD [Concomitant]
     Dosage: 5/2.5
     Route: 048
     Dates: start: 20160314, end: 20160407
  10. IRCODON [Concomitant]
     Route: 048
     Dates: start: 20160408
  11. NEURONTIN (SOUTH KOREA) [Concomitant]
     Indication: MUSCULOSKELETAL CHEST PAIN
     Route: 048
     Dates: start: 20160408, end: 20160413
  12. DURICEF [Concomitant]
     Active Substance: CEFADROXIL
     Route: 048
     Dates: start: 20160427, end: 20160501
  13. DENOGAN [Concomitant]
     Active Substance: PROPACETAMOL HYDROCHLORIDE
     Indication: PYREXIA
     Route: 042
     Dates: start: 20160502, end: 20160520
  14. YAL [Concomitant]
     Route: 054
     Dates: start: 20160513, end: 20160513
  15. ALGIRON [Concomitant]
     Route: 030
     Dates: start: 20160513, end: 20160513
  16. TARGIN RETARD [Concomitant]
     Route: 048
     Dates: start: 20160508
  17. CURAN [Concomitant]
     Active Substance: RANITIDINE HYDROCHLORIDE
     Indication: DYSPEPSIA
     Route: 047
     Dates: start: 20160314, end: 20160501
  18. MAGNESIUM OXIDE. [Concomitant]
     Active Substance: MAGNESIUM OXIDE
     Indication: CONSTIPATION
     Route: 048
     Dates: start: 20160313, end: 20160501
  19. SYLCON [Concomitant]
     Indication: CONSTIPATION
     Route: 048
     Dates: start: 20160316, end: 20160426
  20. TARGIN RETARD [Concomitant]
     Dosage: 20/10
     Route: 048
     Dates: start: 20160408, end: 20160501
  21. TARGIN RETARD [Concomitant]
     Dosage: 10/5
     Route: 048
     Dates: start: 20160519
  22. XANAX [Concomitant]
     Active Substance: ALPRAZOLAM
     Route: 048
     Dates: start: 20160502, end: 20160509
  23. YAL [Concomitant]
     Dosage: SOL(D-SORBITOL 13.4G, DOCUSATE SODIUM 10MG
     Route: 054
     Dates: start: 20160502, end: 20160502
  24. MORPHINE HYDROCHLORIDE [Concomitant]
     Active Substance: MORPHINE HYDROCHLORIDE
     Route: 042
     Dates: start: 20160503, end: 20160507
  25. TAGAMET [Concomitant]
     Active Substance: CIMETIDINE
     Indication: DYSPEPSIA
     Route: 048
     Dates: start: 20160525, end: 20160622
  26. OLIMEL N9E [Concomitant]
     Route: 042
     Dates: start: 20160502, end: 20160507
  27. MYPOL (SOUTH KOREA) [Concomitant]
     Indication: MUSCULOSKELETAL CHEST PAIN
     Route: 048
     Dates: start: 20160508, end: 20160516
  28. MORPHINE HYDROCHLORIDE [Concomitant]
     Active Substance: MORPHINE HYDROCHLORIDE
     Indication: MUSCULOSKELETAL CHEST PAIN
     Route: 042
     Dates: start: 20160503
  29. MOXR0916 [Suspect]
     Active Substance: INVESTIGATIONAL PRODUCT
     Indication: METASTATIC NEOPLASM
     Dosage: MOST RECENT DOSE OF 300 MG MOXR0916 PRIOR TO AE ONSET 27/APR/2016
     Route: 042
     Dates: start: 20160407
  30. ATEZOLIZUMAB [Suspect]
     Active Substance: ATEZOLIZUMAB
     Indication: METASTATIC NEOPLASM
     Dosage: MOST RECENT DOSE OF ATEZOLIZUMAB PRIOR TO AE ONSET 27APR/2016
     Route: 042
     Dates: start: 20160407
  31. IRCODON [Concomitant]
     Indication: MUSCULOSKELETAL CHEST PAIN
     Route: 048
     Dates: start: 20160313, end: 20160407
  32. GLYCERIN. [Concomitant]
     Active Substance: GLYCERIN
     Indication: CONSTIPATION
     Dosage: ENEMA 50%
     Route: 054
     Dates: start: 20160427, end: 20160427
  33. NEURONTIN (SOUTH KOREA) [Concomitant]
     Route: 048
     Dates: start: 20160508, end: 20160622
  34. XANAX [Concomitant]
     Active Substance: ALPRAZOLAM
     Indication: MUSCULOSKELETAL CHEST PAIN
     Route: 048
     Dates: start: 20160427, end: 20160501
  35. TRIDOL [Concomitant]
     Active Substance: TRAMADOL HYDROCHLORIDE
     Indication: PYREXIA
     Route: 042
     Dates: start: 20160502, end: 20160520
  36. MORPHINE SULFATE. [Concomitant]
     Active Substance: MORPHINE SULFATE
     Indication: MUSCULOSKELETAL CHEST PAIN
     Route: 042
     Dates: start: 20160502, end: 20160520
  37. MORPHINE SULFATE. [Concomitant]
     Active Substance: MORPHINE SULFATE
     Route: 042
     Dates: start: 20160502, end: 20160807
  38. KYNEX OPH [Concomitant]
     Indication: DRY EYE
     Dosage: 1 OTHER
     Route: 047
     Dates: start: 20160519
  39. CAROL-F [Concomitant]
     Route: 048
     Dates: start: 20160314, end: 20160501
  40. TARGIN RETARD [Concomitant]
     Dosage: 5/2.5
     Route: 048
     Dates: start: 20160427, end: 20160501
  41. RESOLOR [Concomitant]
     Active Substance: PRUCALOPRIDE SUCCINATE
     Indication: CONSTIPATION
     Route: 048
     Dates: start: 20160407, end: 20160501
  42. RESOLOR [Concomitant]
     Active Substance: PRUCALOPRIDE SUCCINATE
     Route: 048
     Dates: start: 20160516, end: 20160520
  43. DUPHALAC EASY [Concomitant]
     Route: 048
     Dates: start: 20160516, end: 20160516
  44. MEGACE F [Concomitant]
     Indication: DECREASED APPETITE
     Route: 048
     Dates: start: 20160406, end: 20160501
  45. MUCOSTA [Concomitant]
     Active Substance: REBAMIPIDE
     Indication: DYSPEPSIA
     Route: 048
     Dates: start: 20160513, end: 20160527
  46. WINUF [Concomitant]
     Route: 042
     Dates: start: 20160510, end: 20160512
  47. DUPHALAC EASY [Concomitant]
     Indication: CONSTIPATION
     Route: 048
     Dates: start: 20160313, end: 20160501

REACTIONS (1)
  - Colitis ischaemic [Recovered/Resolved]

NARRATIVE: CASE EVENT DATE: 20160502
